FAERS Safety Report 22051488 (Version 2)
Quarter: 2023Q2

REPORT INFORMATION
  Report Type: Spontaneous
  Country: JP (occurrence: JP)
  Receive Date: 20230301
  Receipt Date: 20230414
  Transmission Date: 20230722
  Serious: Yes (Other)
  Sender: FDA-Public Use
  Company Number: JP-MTPC-MTPC2023-0005251AA

PATIENT
  Age: 45 Year
  Sex: Male

DRUGS (1)
  1. REMICADE [Suspect]
     Active Substance: INFLIXIMAB
     Indication: Crohn^s disease
     Dosage: UNK
     Route: 041

REACTIONS (6)
  - Pneumonia [Unknown]
  - Acute kidney injury [Unknown]
  - Generalised oedema [Unknown]
  - IgA nephropathy [Unknown]
  - Protein urine present [Unknown]
  - Cellulitis [Unknown]
